FAERS Safety Report 9617708 (Version 1)
Quarter: 2013Q4

REPORT INFORMATION
  Report Type: Spontaneous
  Country: DZ (occurrence: None)
  Receive Date: 20131009
  Receipt Date: 20131009
  Transmission Date: 20140711
  Serious: Yes (Death)
  Sender: FDA-Public Use
  Company Number: SYM-2013-11312

PATIENT
  Sex: 0

DRUGS (3)
  1. FLUOROURACIL [Suspect]
     Indication: NASOPHARYNGEAL CANCER
  2. CISPLATIN (CISPLATIN) (CISPLATIN) [Suspect]
     Indication: NASOPHARYNGEAL CANCER
  3. DOCETAXEL [Suspect]
     Indication: NASOPHARYNGEAL CANCER

REACTIONS (1)
  - Sepsis [None]
